FAERS Safety Report 7492901-5 (Version None)
Quarter: 2011Q2

REPORT INFORMATION
  Report Type: 
  Country: None (occurrence: None)
  Receive Date: 20110520
  Receipt Date: 20110511
  Transmission Date: 20111010
  Serious: Yes (Hospitalization)
  Sender: FDA-Public Use
  Company Number: US-BIOGENIDEC-2011BI018141

PATIENT
  Age: 25 Year
  Sex: Male

DRUGS (1)
  1. AVONEX [Suspect]
     Indication: MULTIPLE SCLEROSIS
     Route: 030
     Dates: start: 20060909

REACTIONS (13)
  - ARTHRITIS [None]
  - MULTIPLE SCLEROSIS RELAPSE [None]
  - HYPERAESTHESIA [None]
  - BODY TEMPERATURE FLUCTUATION [None]
  - HEADACHE [None]
  - MUSCULOSKELETAL STIFFNESS [None]
  - MUSCULOSKELETAL DISCOMFORT [None]
  - VISUAL IMPAIRMENT [None]
  - ANXIETY [None]
  - PAIN [None]
  - FEAR OF NEEDLES [None]
  - BURNING SENSATION [None]
  - HYPERHIDROSIS [None]
